FAERS Safety Report 17902483 (Version 5)
Quarter: 2024Q1

REPORT INFORMATION
  Report Type: Report from Study
  Country: IT (occurrence: IT)
  Receive Date: 20200617
  Receipt Date: 20240202
  Transmission Date: 20240410
  Serious: Yes (Death, Hospitalization)
  Sender: FDA-Public Use
  Company Number: IT-CELLTRION INC.-2020IT023286

PATIENT

DRUGS (18)
  1. HERCEPTIN [Suspect]
     Active Substance: TRASTUZUMAB
     Indication: HER2 positive breast cancer
     Dosage: 470 MG
     Route: 041
  2. TRASTUZUMAB [Suspect]
     Active Substance: TRASTUZUMAB
     Indication: Breast cancer
     Dosage: 470 MG, EVERY 3 WEEKS; MOST RECENT DOSE PRIOR TO THE EVENT 19/APR/2019
     Route: 041
  3. DOCETAXEL [Suspect]
     Active Substance: DOCETAXEL\DOCETAXEL ANHYDROUS
     Indication: Breast cancer
     Dosage: 110 MG, EVERY 3 WEEKS
     Route: 042
     Dates: start: 20170727
  4. ADO-TRASTUZUMAB EMTANSINE [Suspect]
     Active Substance: ADO-TRASTUZUMAB EMTANSINE
     Indication: Breast cancer
     Dosage: 190 MG, EVERY 3 WEEKS; MOST RECENT DOSE PRIOR TO THE EVENT: 24/AUG/2018
     Route: 042
     Dates: start: 20180706
  5. LAPATINIB [Suspect]
     Active Substance: LAPATINIB
     Indication: Breast cancer
     Dosage: 1000 MG, DAILY
     Route: 048
     Dates: start: 20181219, end: 20190326
  6. GEMCITABINE [Suspect]
     Active Substance: GEMCITABINE
     Indication: Breast cancer
     Dosage: 1400 MG, OTHER
     Route: 042
     Dates: start: 20190627
  7. VINORELBINE [Suspect]
     Active Substance: VINORELBINE TARTRATE
     Indication: Breast cancer
     Dosage: 35 MG, OTHER
     Route: 042
     Dates: start: 20190327, end: 20190620
  8. PERTUZUMAB [Suspect]
     Active Substance: PERTUZUMAB
     Indication: Breast cancer
     Dosage: 840 MG, EVERY 3 WEEKS; MOST RECENT DOSE PRIOR TO THE EVENT 17/AUG/2017
     Route: 042
     Dates: start: 20170727
  9. CAPECITABINE [Suspect]
     Active Substance: CAPECITABINE
     Indication: Breast cancer
     Dosage: 2500 MG
     Route: 048
     Dates: start: 20181219, end: 20190326
  10. BARNIDIPINE HYDROCHLORIDE [Concomitant]
     Active Substance: BARNIDIPINE HYDROCHLORIDE
     Dosage: UNK
  11. CHLORPHENIRAMINE [Concomitant]
     Active Substance: CHLORPHENIRAMINE
     Dosage: UNK
  12. RANITIDINE [Concomitant]
     Active Substance: RANITIDINE
     Dosage: UNK
  13. DENOSUMAB [Concomitant]
     Active Substance: DENOSUMAB
     Dosage: UNK
  14. METOCLOPRAMIDE [Concomitant]
     Active Substance: METOCLOPRAMIDE
     Dosage: UNK
  15. DEXAMETHASONE [Concomitant]
     Active Substance: DEXAMETHASONE
     Dosage: UNK
  16. GRANISETRON [Concomitant]
     Active Substance: GRANISETRON
     Dosage: ONGOING = NOT CHECKED
     Dates: start: 20170727, end: 20200220
  17. HYDROCHLOROTHIAZIDE\IRBESARTAN [Concomitant]
     Active Substance: HYDROCHLOROTHIAZIDE\IRBESARTAN
     Dosage: UNK
  18. BISOPROLOL [Concomitant]
     Active Substance: BISOPROLOL\BISOPROLOL FUMARATE
     Dosage: UNK
     Dates: start: 20190704, end: 20200329

REACTIONS (2)
  - Breast cancer [Fatal]
  - Overdose [Unknown]

NARRATIVE: CASE EVENT DATE: 20200316
